FAERS Safety Report 11244724 (Version 2)
Quarter: 2015Q3

REPORT INFORMATION
  Report Type: Report from Study
  Country: DK (occurrence: DK)
  Receive Date: 20150707
  Receipt Date: 20150714
  Transmission Date: 20151125
  Serious: Yes (Hospitalization)
  Sender: FDA-Public Use
  Company Number: DK-BAYER-2015-368596

PATIENT
  Sex: Male

DRUGS (2)
  1. METRONIDAZOL [Concomitant]
     Active Substance: METRONIDAZOLE
     Indication: ANTIBIOTIC PROPHYLAXIS
     Dosage: 500 MG, 2 HOURS BEFORE BIOPSY, 6 HOURS AFTER BIOPSY, AND THE FOLLOWING MORNING
     Route: 048
  2. CIPROFLOXACIN TABLET [Suspect]
     Active Substance: CIPROFLOXACIN
     Indication: ANTIBIOTIC PROPHYLAXIS
     Dosage: 500 MG, 2 HOURS BEFORE BIOPSY, 6 HOURS AFTER BIOPSY, AND THE FOLLOWING MORNING
     Route: 048

REACTIONS (3)
  - Escherichia sepsis [Recovered/Resolved]
  - Off label use [None]
  - Escherichia infection [Recovered/Resolved]
